FAERS Safety Report 7362618-6 (Version None)
Quarter: 2011Q1

REPORT INFORMATION
  Report Type: 
  Country: None (occurrence: None)
  Receive Date: 20110320
  Receipt Date: 20100816
  Transmission Date: 20110831
  Serious: Yes (Hospitalization, Other)
  Sender: FDA-Public Use
  Company Number: US-BAYER-200941479NA

PATIENT
  Sex: Female
  Weight: 72 kg

DRUGS (16)
  1. AMOXICILLIN [Concomitant]
     Dosage: 500 MG, UNK
     Dates: start: 20090406
  2. YAZ [Suspect]
     Indication: ORAL CONTRACEPTION
     Dates: start: 20061128, end: 20090615
  3. PROPOXYPHENE NAPSYLATE W/ ACETAMINOPHEN [Concomitant]
     Dosage: 06-JUN2-009
     Route: 065
  4. YAZ [Suspect]
     Indication: ACNE
  5. CELEBREX [Concomitant]
     Dosage: 05-JUN-2009 (10 DAY SUPPLY)
     Route: 065
  6. QVAR 40 [Concomitant]
     Dosage: UNK UNK, BID
     Route: 055
     Dates: start: 20091005
  7. DECONAMINE [PSEUDOEPHEDRINE HYDROCHLORIDE] [Concomitant]
     Dosage: UNK
     Dates: start: 20090406
  8. VALTREX [Concomitant]
     Dosage: 29-MAY-2009
     Route: 065
  9. RELPAX [Concomitant]
     Route: 065
  10. HYDROCODONE/ACETAMINOPHEN [Concomitant]
     Dosage: 04-JUN-2009
     Route: 065
  11. ASPIRIN [Concomitant]
     Dosage: 325 MG, BID
  12. YAZ [Suspect]
     Indication: HYPOMENORRHOEA
  13. DULCO-LAXO [Concomitant]
     Route: 065
  14. ADVIL LIQUI-GELS [Concomitant]
     Route: 065
  15. PROTONIX [Concomitant]
     Route: 065
  16. SINGULAIR [Concomitant]
     Dosage: UNK UNK, PRN
     Route: 055

REACTIONS (6)
  - PULMONARY INFARCTION [None]
  - PLEURAL EFFUSION [None]
  - PLEURITIC PAIN [None]
  - DYSPNOEA [None]
  - PULMONARY EMBOLISM [None]
  - LUNG NEOPLASM [None]
